FAERS Safety Report 5906800-0 (Version None)
Quarter: 2008Q3

REPORT INFORMATION
  Report Type: 
  Country: None (occurrence: None)
  Receive Date: 20080929
  Receipt Date: 20080912
  Transmission Date: 20090109
  Serious: Yes (Hospitalization)
  Sender: FDA-Public Use
  Company Number: SPV1-2008-01956

PATIENT
  Age: 44 Year
  Sex: Female
  Weight: 51.2 kg

DRUGS (6)
  1. DAYTRANA [Suspect]
     Indication: DEPRESSION
     Dosage: 30 MG, 1X/DAY:QD, TRANSDERMAL
     Route: 062
     Dates: start: 20080601, end: 20080822
  2. PRILOSEC /00661201/(OMEPRAZOLE) [Concomitant]
  3. REGLAN [Concomitant]
  4. CELEXA [Concomitant]
  5. BUSPAR(BUSIPRONE HYDROCHLORIDE) [Concomitant]
  6. FIORICET [Concomitant]

REACTIONS (2)
  - FEELING ABNORMAL [None]
  - OFF LABEL USE [None]
